FAERS Safety Report 17818631 (Version 3)
Quarter: 2020Q2

REPORT INFORMATION
  Report Type: Spontaneous
  Country: US (occurrence: US)
  Receive Date: 20200522
  Receipt Date: 20200528
  Transmission Date: 20200714
  Serious: Yes (Death, Hospitalization)
  Sender: FDA-Public Use
  Company Number: US-SEATTLE GENETICS-2020SGN02163

PATIENT
  Age: 52 Year
  Sex: Female
  Weight: 112 kg

DRUGS (12)
  1. BENDAMUSTINE [Suspect]
     Active Substance: BENDAMUSTINE
     Indication: HODGKIN^S DISEASE
     Dosage: UNK
     Dates: start: 20200408, end: 20200429
  2. ONDANSETRON [Concomitant]
     Active Substance: ONDANSETRON
  3. IBUPROFEN. [Concomitant]
     Active Substance: IBUPROFEN
  4. MUPIROCIN. [Concomitant]
     Active Substance: MUPIROCIN
  5. ADCETRIS [Suspect]
     Active Substance: BRENTUXIMAB VEDOTIN
     Indication: HODGKIN^S DISEASE
     Dosage: 180 MG, Q3WEEKS
     Route: 042
     Dates: start: 20200408, end: 20200408
  6. VALACYCLOVIR                       /01269701/ [Concomitant]
     Active Substance: VALACYCLOVIR HYDROCHLORIDE
  7. POTASSIUM [Concomitant]
     Active Substance: POTASSIUM
  8. ADCETRIS [Suspect]
     Active Substance: BRENTUXIMAB VEDOTIN
     Dosage: 180 MG, Q3WEEKS
     Route: 042
     Dates: start: 20200429, end: 20200429
  9. FAMOTIDINE. [Concomitant]
     Active Substance: FAMOTIDINE
  10. GABAPENTIN. [Concomitant]
     Active Substance: GABAPENTIN
  11. ALLOPURINOL. [Concomitant]
     Active Substance: ALLOPURINOL
  12. OLANZAPINE. [Concomitant]
     Active Substance: OLANZAPINE

REACTIONS (22)
  - Diabetic ketoacidosis [Fatal]
  - Multiple organ dysfunction syndrome [Fatal]
  - Pancytopenia [Unknown]
  - Nausea [Unknown]
  - Pneumonia [Unknown]
  - Lung opacity [Unknown]
  - Vomiting [Unknown]
  - Chest X-ray abnormal [Unknown]
  - Hepatic enzyme increased [Unknown]
  - Product use issue [Unknown]
  - Metabolic encephalopathy [Unknown]
  - Acute kidney injury [Unknown]
  - Chronic obstructive pulmonary disease [Unknown]
  - Ileus [Unknown]
  - Blood bilirubin increased [Unknown]
  - Hypotension [Unknown]
  - Septic shock [Unknown]
  - Lactic acidosis [Fatal]
  - Hyperglycaemia [Unknown]
  - Blood electrolytes increased [Unknown]
  - Dyspnoea [Unknown]
  - Mental status changes [Unknown]

NARRATIVE: CASE EVENT DATE: 202005
